FAERS Safety Report 22211065 (Version 1)
Quarter: 2023Q2

REPORT INFORMATION
  Report Type: Spontaneous
  Country: US (occurrence: None)
  Receive Date: 20230413
  Receipt Date: 20230413
  Transmission Date: 20230722
  Serious: Yes (Other)
  Sender: FDA-Public Use
  Company Number: None

PATIENT
  Sex: Male

DRUGS (1)
  1. CAPECITABINE [Suspect]
     Active Substance: CAPECITABINE
     Dosage: FREQUENCY : TWICE A DAY;?
     Route: 048

REACTIONS (10)
  - Road traffic accident [None]
  - Face injury [None]
  - Facial bones fracture [None]
  - Epistaxis [None]
  - Eye contusion [None]
  - Eye swelling [None]
  - Dehydration [None]
  - Contusion [None]
  - Lip pain [None]
  - Mass [None]
